FAERS Safety Report 8362071-X (Version None)
Quarter: 2012Q2

REPORT INFORMATION
  Report Type: 
  Country: None (occurrence: None)
  Receive Date: 20120515
  Receipt Date: 20091102
  Transmission Date: 20120825
  Serious: Yes (Other)
  Sender: FDA-Public Use
  Company Number: US-ROCHE-660965

PATIENT
  Sex: Female

DRUGS (2)
  1. XELODA [Suspect]
     Indication: PRODUCT USED FOR UNKNOWN INDICATION
     Route: 065
  2. TYKERB [Suspect]
     Indication: PRODUCT USED FOR UNKNOWN INDICATION
     Dosage: FREQUENCY: TWO WEEKS ON AND ONE WEEK OFF
     Route: 048

REACTIONS (13)
  - DRUG ADMINISTRATION ERROR [None]
  - ERYTHEMA [None]
  - MUSCULOSKELETAL DISCOMFORT [None]
  - CONDITION AGGRAVATED [None]
  - PAIN OF SKIN [None]
  - CHEST DISCOMFORT [None]
  - DYSPEPSIA [None]
  - DIARRHOEA [None]
  - BLISTER [None]
  - SKIN CHAPPED [None]
  - METASTASIS [None]
  - PALMAR-PLANTAR ERYTHRODYSAESTHESIA SYNDROME [None]
  - JOINT INJURY [None]
